FAERS Safety Report 23262697 (Version 1)
Quarter: 2023Q4

REPORT INFORMATION
  Report Type: Spontaneous
  Country: US (occurrence: US)
  Receive Date: 20231205
  Receipt Date: 20231205
  Transmission Date: 20240110
  Serious: Yes (Other)
  Sender: FDA-Public Use
  Company Number: US-AstraZeneca-CH-00520702A

PATIENT
  Age: 13 Year
  Sex: Female

DRUGS (2)
  1. ULTOMIRIS [Suspect]
     Active Substance: RAVULIZUMAB-CWVZ
     Indication: C3 glomerulopathy
     Dosage: UNK
     Route: 065
     Dates: start: 202206
  2. ULTOMIRIS [Suspect]
     Active Substance: RAVULIZUMAB-CWVZ
     Indication: Off label use

REACTIONS (7)
  - Anaphylactic reaction [Unknown]
  - Off label use [Unknown]
  - Flushing [Unknown]
  - Chest pain [Unknown]
  - Dyspnoea [Unknown]
  - Vision blurred [Unknown]
  - Panic reaction [Unknown]

NARRATIVE: CASE EVENT DATE: 20231130
